FAERS Safety Report 17631330 (Version 1)
Quarter: 2020Q2

REPORT INFORMATION
  Report Type: Spontaneous
  Country: ES (occurrence: ES)
  Receive Date: 20200406
  Receipt Date: 20200406
  Transmission Date: 20200713
  Serious: Yes (Other)
  Sender: FDA-Public Use
  Company Number: ES-SA-2020SA081114

PATIENT
  Age: 42 Year
  Sex: Female
  Weight: 65 kg

DRUGS (1)
  1. CAPRELSA [Suspect]
     Active Substance: VANDETANIB
     Indication: MEDULLARY THYROID CANCER
     Dosage: 300 MG, QD
     Route: 048
     Dates: start: 20140323, end: 20161122

REACTIONS (2)
  - Renal impairment [Unknown]
  - Perinephric collection [Unknown]

NARRATIVE: CASE EVENT DATE: 20161114
